FAERS Safety Report 23043033 (Version 2)
Quarter: 2023Q4

REPORT INFORMATION
  Report Type: Report from Study
  Country: US (occurrence: US)
  Receive Date: 20231009
  Receipt Date: 20231019
  Transmission Date: 20240110
  Serious: No
  Sender: FDA-Public Use
  Company Number: US-AMGEN-USASL2023176848

PATIENT
  Age: 68 Year
  Sex: Male

DRUGS (2)
  1. NEULASTA [Suspect]
     Active Substance: PEGFILGRASTIM
     Indication: Prophylaxis
     Dosage: 1 DOSAGE FORM, AFTER CHEMO
     Route: 065
     Dates: start: 20230821
  2. NEULASTA [Suspect]
     Active Substance: PEGFILGRASTIM
     Dosage: 1 DOSAGE FORM, AFTER CHEMO
     Route: 065

REACTIONS (2)
  - Device placement issue [Unknown]
  - Device adhesion issue [Unknown]

NARRATIVE: CASE EVENT DATE: 20231002
